FAERS Safety Report 15598215 (Version 2)
Quarter: 2018Q4

REPORT INFORMATION
  Report Type: Report from Study
  Country: DE (occurrence: DE)
  Receive Date: 20181108
  Receipt Date: 20181113
  Transmission Date: 20190205
  Serious: Yes (Hospitalization)
  Sender: FDA-Public Use
  Company Number: DE-SA-2018SA299502

PATIENT
  Sex: Male
  Weight: 84 kg

DRUGS (1)
  1. CABAZITAXEL [Suspect]
     Active Substance: CABAZITAXEL
     Indication: HORMONE-REFRACTORY PROSTATE CANCER
     Dosage: 20 MG/M2, UNK
     Route: 042
     Dates: start: 20181002, end: 20181002

REACTIONS (1)
  - Musculoskeletal pain [Not Recovered/Not Resolved]

NARRATIVE: CASE EVENT DATE: 20181009
